FAERS Safety Report 18404765 (Version 1)
Quarter: 2020Q4

REPORT INFORMATION
  Report Type: Spontaneous
  Country: US (occurrence: US)
  Receive Date: 20201020
  Receipt Date: 20201020
  Transmission Date: 20210114
  Serious: Yes (Hospitalization)
  Sender: FDA-Public Use
  Company Number: None

PATIENT
  Sex: Male
  Weight: 102 kg

DRUGS (5)
  1. TAXOL [Suspect]
     Active Substance: PACLITAXEL
     Dates: end: 20191011
  2. CARBOPLATIN (214240) [Suspect]
     Active Substance: CARBOPLATIN
     Dates: end: 20191125
  3. ETOPOSID E (VP-16)?2700 MG [Suspect]
     Active Substance: ETOPOSIDE
     Dates: end: 20191125
  4. IFOSFAMIDE 13440 MG [Suspect]
     Active Substance: IFOSFAMIDE
     Dates: end: 20191013
  5. G-CSF (FILGRASTIM, AMGEN)?300 MCG [Suspect]
     Active Substance: FILGRASTIM
     Dates: end: 20191210

REACTIONS (6)
  - Muscle spasms [None]
  - Rhabdomyolysis [None]
  - Blood creatine phosphokinase increased [None]
  - Chills [None]
  - Dysstasia [None]
  - Neutropenic sepsis [None]

NARRATIVE: CASE EVENT DATE: 20191208
